FAERS Safety Report 4777207-7 (Version None)
Quarter: 2005Q3

REPORT INFORMATION
  Report Type: 
  Country: None (occurrence: None)
  Receive Date: 20050923
  Receipt Date: 20050620
  Transmission Date: 20060218
  Serious: Yes (Hospitalization)
  Sender: FDA-Public Use
  Company Number: US-MERCK-0506USA02940

PATIENT
  Age: 50 Year
  Sex: Male
  Weight: 80 kg

DRUGS (8)
  1. VIOXX [Suspect]
     Indication: OSTEOARTHRITIS
     Route: 048
     Dates: start: 20010801, end: 20031001
  2. VIOXX [Suspect]
     Indication: PAIN
     Route: 048
     Dates: start: 20010801, end: 20031001
  3. OXYCONTIN [Concomitant]
     Indication: PAIN
     Route: 065
  4. OXYCONTIN [Concomitant]
     Indication: INTERVERTEBRAL DISC DEGENERATION
     Route: 065
  5. HYDROCODONE BITARTRATE [Concomitant]
     Indication: PAIN
     Route: 065
  6. HYDROCODONE BITARTRATE [Concomitant]
     Indication: INTERVERTEBRAL DISC DEGENERATION
     Route: 065
  7. MAXIDONE [Concomitant]
     Route: 065
  8. SKELAXIN [Concomitant]
     Route: 065

REACTIONS (6)
  - ANXIETY DISORDER [None]
  - BLOOD CHOLESTEROL INCREASED [None]
  - GALLBLADDER DISORDER [None]
  - HAEMATOCHEZIA [None]
  - MYOCARDIAL INFARCTION [None]
  - PANIC DISORDER [None]
